FAERS Safety Report 24685239 (Version 1)
Quarter: 2024Q4

REPORT INFORMATION
  Report Type: Spontaneous
  Country: US (occurrence: US)
  Receive Date: 20241202
  Receipt Date: 20241202
  Transmission Date: 20250115
  Serious: Yes (Hospitalization)
  Sender: BAYER HEALTHCARE PHARMACEUTICALS INC.
  Company Number: US-BAYER-2024A167744

PATIENT
  Age: 79 Year
  Sex: Male

DRUGS (24)
  1. ADEMPAS [Suspect]
     Active Substance: RIOCIGUAT
     Indication: Pulmonary hypertension
     Dosage: 2.5 MG, TID
     Route: 048
     Dates: start: 20190213
  2. METOLAZONE [Concomitant]
     Active Substance: METOLAZONE
  3. BUMEX [Concomitant]
     Active Substance: BUMETANIDE
  4. MEXITIL [Concomitant]
     Active Substance: MEXILETINE HYDROCHLORIDE
  5. GABAPENTIN [Concomitant]
     Active Substance: GABAPENTIN
  6. WARFARIN [Concomitant]
     Active Substance: WARFARIN
  7. MONTELUKAST [Concomitant]
     Active Substance: MONTELUKAST
  8. ALBUTEROL [Concomitant]
     Active Substance: ALBUTEROL
  9. ALBUTEROL SULFATE [Concomitant]
     Active Substance: ALBUTEROL SULFATE
  10. HUMULIN N [Concomitant]
     Active Substance: INSULIN HUMAN
  11. INSULIN LISPRO [Concomitant]
     Active Substance: INSULIN LISPRO
  12. ATORVASTATIN [Concomitant]
     Active Substance: ATORVASTATIN
  13. ATROVENT [Concomitant]
     Active Substance: IPRATROPIUM BROMIDE
  14. BISOPROLOL [Concomitant]
     Active Substance: BISOPROLOL
  15. PANTOPRAZOLE [Concomitant]
     Active Substance: PANTOPRAZOLE
  16. ESCITALOPRAM [Concomitant]
     Active Substance: ESCITALOPRAM OXALATE
  17. WIXELA INHUB [Concomitant]
     Active Substance: FLUTICASONE PROPIONATE\SALMETEROL XINAFOATE
  18. MAGNESIUM OXIDE [Concomitant]
     Active Substance: MAGNESIUM OXIDE
  19. FLONASE [Concomitant]
     Active Substance: FLUTICASONE PROPIONATE
  20. CALCIUM CITRATE\CHOLECALCIFEROL [Concomitant]
     Active Substance: CALCIUM CITRATE\CHOLECALCIFEROL
  21. FERROUS SULFATE [Concomitant]
     Active Substance: FERROUS SULFATE
  22. NEPHRO VITE RX [Concomitant]
     Active Substance: ASCORBIC ACID\BIOTIN\CALCIUM PANTOTHENATE\CYANOCOBALAMIN\FOLIC ACID\NIACINAMIDE\PYRIDOXINE HYDROCHLO
  23. METAMUCIL [Concomitant]
     Active Substance: PLANTAGO SEED
  24. TOPIRAMATE [Concomitant]
     Active Substance: TOPIRAMATE

REACTIONS (3)
  - Peripheral swelling [Recovering/Resolving]
  - Pain in extremity [Recovering/Resolving]
  - Cellulitis [Recovering/Resolving]

NARRATIVE: CASE EVENT DATE: 20241101
